FAERS Safety Report 20536910 (Version 1)
Quarter: 2022Q1

REPORT INFORMATION
  Report Type: Other
  Country: IN (occurrence: None)
  Receive Date: 20220302
  Receipt Date: 20220302
  Transmission Date: 20220424
  Serious: Yes (Other)
  Sender: FDA-Public Use
  Company Number: IN-ROCHE-2822613

PATIENT
  Age: 62 Year
  Sex: Female

DRUGS (1)
  1. PERJETA [Suspect]
     Active Substance: PERTUZUMAB
     Indication: Breast cancer metastatic
     Route: 042
     Dates: start: 20191021

REACTIONS (3)
  - SARS-CoV-2 test positive [Recovered/Resolved]
  - Disease progression [Unknown]
  - Drug ineffective [Unknown]
